FAERS Safety Report 6747805-X (Version None)
Quarter: 2010Q2

REPORT INFORMATION
  Report Type: 
  Country: None (occurrence: None)
  Receive Date: 20100528
  Receipt Date: 20100517
  Transmission Date: 20101027
  Serious: Yes (Other)
  Sender: FDA-Public Use
  Company Number: JP-PFIZER INC-2010058392

PATIENT
  Age: 15 Year
  Sex: Female

DRUGS (1)
  1. SOLU-MEDROL [Suspect]
     Dosage: 1 G, UNK

REACTIONS (1)
  - ATRIAL FIBRILLATION [None]
